FAERS Safety Report 7776118-2 (Version None)
Quarter: 2011Q3

REPORT INFORMATION
  Report Type: 
  Country: None (occurrence: None)
  Receive Date: 20110925
  Receipt Date: 20090306
  Transmission Date: 20111222
  Serious: Yes (Death, Other)
  Sender: FDA-Public Use
  Company Number: PHHY2009TW60940

PATIENT

DRUGS (1)
  1. TASIGNA [Suspect]
     Indication: CHRONIC MYELOID LEUKAEMIA
     Dosage: UNK

REACTIONS (2)
  - DEATH [None]
  - GASTRIC HAEMORRHAGE [None]
